FAERS Safety Report 9285752 (Version 1)
Quarter: 2013Q2

REPORT INFORMATION
  Report Type: Spontaneous
  Country: US (occurrence: US)
  Receive Date: 20130513
  Receipt Date: 20130513
  Transmission Date: 20140414
  Serious: Yes (Other)
  Sender: FDA-Public Use
  Company Number: US-JNJFOC-20130500904

PATIENT
  Sex: Male

DRUGS (2)
  1. ZYTIGA [Suspect]
     Indication: PROSTATE CANCER
     Dosage: 250 MG X 4 ??NDC57894-150-12
     Route: 048
     Dates: start: 201302
  2. PREDNISONE [Suspect]
     Indication: PROSTATE CANCER
     Route: 048
     Dates: start: 201302

REACTIONS (3)
  - Paraesthesia [Unknown]
  - Muscle spasms [Unknown]
  - Abdominal pain upper [Unknown]
